FAERS Safety Report 5309173-X (Version None)
Quarter: 2007Q2

REPORT INFORMATION
  Report Type: 
  Country: None (occurrence: None)
  Receive Date: 20070420
  Receipt Date: 20070411
  Transmission Date: 20071010
  Serious: Yes (Other)
  Sender: FDA-Public Use
  Company Number: GXKR2007GB03354

PATIENT
  Age: 41 Year
  Sex: Male
  Weight: 95 kg

DRUGS (1)
  1. CITALOPRAM HYDROBROMIDE [Suspect]
     Dosage: 10 MG, UNK, ORAL
     Route: 048
     Dates: start: 20070328, end: 20070402

REACTIONS (4)
  - EMOTIONAL DISTRESS [None]
  - IMPAIRED WORK ABILITY [None]
  - PANIC ATTACK [None]
  - TARDIVE DYSKINESIA [None]
